FAERS Safety Report 20698589 (Version 2)
Quarter: 2022Q2

REPORT INFORMATION
  Report Type: Spontaneous
  Country: US (occurrence: US)
  Receive Date: 20220412
  Receipt Date: 20220429
  Transmission Date: 20220721
  Serious: Yes (Hospitalization)
  Sender: FDA-Public Use
  Company Number: US-AUROBINDO-AUR-APL-2022-011674

PATIENT
  Age: 41 Year
  Sex: Male
  Weight: 231 kg

DRUGS (2)
  1. CLOZAPINE [Suspect]
     Active Substance: CLOZAPINE
     Indication: Product used for unknown indication
     Dosage: 100 MILLIGRAM, DAILY
     Route: 048
     Dates: start: 20220309
  2. CLOZAPINE [Suspect]
     Active Substance: CLOZAPINE
     Dosage: 350 MILLIGRAM, ONCE A DAY (NIGHT)
     Route: 048
     Dates: start: 20220309

REACTIONS (2)
  - Schizoaffective disorder [Unknown]
  - Neutrophilia [Unknown]
